FAERS Safety Report 10846622 (Version 1)
Quarter: 2015Q1

REPORT INFORMATION
  Report Type: Report from Study
  Country: GB (occurrence: GB)
  Receive Date: 20150220
  Receipt Date: 20150220
  Transmission Date: 20150721
  Serious: Yes (Other)
  Sender: FDA-Public Use
  Company Number: GB-GLAXOSMITHKLINE-GB2015GSK022704

PATIENT
  Sex: Female

DRUGS (11)
  1. TRAMETINIB [Suspect]
     Active Substance: TRAMETINIB
     Dosage: 1.5 MG, UNK
     Dates: start: 20140327, end: 20140401
  2. VEMURAFENIB [Concomitant]
     Active Substance: VEMURAFENIB
  3. TRAMETINIB [Suspect]
     Active Substance: TRAMETINIB
     Dosage: 1.5 MG, UNK
     Dates: start: 20131219
  4. DABRAFENIB [Suspect]
     Active Substance: DABRAFENIB
     Dosage: UNK
  5. TRAMETINIB [Suspect]
     Active Substance: TRAMETINIB
     Indication: METASTATIC MALIGNANT MELANOMA
     Dosage: 1.5 MG, UNK
     Dates: start: 20131024
  6. TRAMETINIB [Suspect]
     Active Substance: TRAMETINIB
     Dosage: 2 MG, UNK
     Dates: start: 20140116, end: 20140226
  7. DABRAFENIB [Suspect]
     Active Substance: DABRAFENIB
     Dosage: 100 MG, UNK
     Dates: start: 20140327, end: 20140401
  8. DABRAFENIB [Suspect]
     Active Substance: DABRAFENIB
     Dosage: 100 MG, BID
     Dates: start: 20131219
  9. DABRAFENIB [Suspect]
     Active Substance: DABRAFENIB
     Dosage: 75 MG, UNK
     Dates: start: 20140424
  10. DABRAFENIB [Suspect]
     Active Substance: DABRAFENIB
     Indication: METASTATIC MALIGNANT MELANOMA
     Dosage: 100 MG, BID
     Dates: start: 20131024
  11. DABRAFENIB [Suspect]
     Active Substance: DABRAFENIB
     Dosage: 2 MG, UNK
     Dates: start: 20140116, end: 20140226

REACTIONS (5)
  - Pyrexia [Unknown]
  - Transaminases increased [Unknown]
  - Nausea [Unknown]
  - Pneumatosis intestinalis [Unknown]
  - Vomiting [Unknown]
